FAERS Safety Report 16784244 (Version 1)
Quarter: 2019Q3

REPORT INFORMATION
  Report Type: Report from Study
  Country: US (occurrence: US)
  Receive Date: 20190909
  Receipt Date: 20190909
  Transmission Date: 20191005
  Serious: No
  Sender: FDA-Public Use
  Company Number: PHEH2019US036634

PATIENT
  Sex: Male

DRUGS (1)
  1. ENTRESTO [Suspect]
     Active Substance: SACUBITRIL\VALSARTAN
     Indication: MYOCARDIAL INFARCTION
     Dosage: 1 DF (97MG OF SACUBITRIL AND 103 MG OF VALSARTAN), UNK
     Route: 048

REACTIONS (6)
  - Prescribed overdose [Unknown]
  - Asthenia [Unknown]
  - Wrong technique in product usage process [Unknown]
  - Fatigue [Unknown]
  - Product use in unapproved indication [Unknown]
  - Chest pain [Unknown]
